FAERS Safety Report 13999720 (Version 1)
Quarter: 2017Q3

REPORT INFORMATION
  Report Type: Other
  Country: CA (occurrence: CA)
  Receive Date: 20170922
  Receipt Date: 20170922
  Transmission Date: 20171128
  Serious: Yes (Death, Hospitalization, Other)
  Sender: FDA-Public Use
  Company Number: CA-APOTEX-2017AP018348

PATIENT
  Sex: Female

DRUGS (1)
  1. APO-CIPROFLOX [Suspect]
     Active Substance: CIPROFLOXACIN
     Indication: PNEUMONIA
     Dosage: UNK, BID
     Route: 065

REACTIONS (2)
  - Renal injury [Fatal]
  - Nephritis [Fatal]
